FAERS Safety Report 7595262-6 (Version None)
Quarter: 2011Q3

REPORT INFORMATION
  Report Type: 
  Country: None (occurrence: None)
  Receive Date: 20110707
  Receipt Date: 20110621
  Transmission Date: 20111222
  Serious: No
  Sender: FDA-Public Use
  Company Number: US-B.I. PHARMACEUTICALS,INC./RIDGEFIELD-2011-BP-08251BP

PATIENT
  Sex: Female

DRUGS (9)
  1. PRADAXA [Suspect]
     Indication: ATRIAL FIBRILLATION
     Dosage: 300 MG
     Route: 048
  2. VESICARE [Concomitant]
     Indication: HYPERTONIC BLADDER
     Dosage: 10 MG
     Route: 048
  3. SIMVASTATIN [Concomitant]
     Indication: BLOOD CHOLESTEROL INCREASED
     Dosage: 20 MG
     Route: 048
  4. AMLODIPINE [Concomitant]
     Indication: HYPERTENSION
     Dosage: 5 MG
     Route: 048
  5. COUMADIN [Concomitant]
     Indication: ATRIAL FIBRILLATION
     Dosage: 3 MG
     Route: 048
  6. REQUIP [Concomitant]
     Indication: RESTLESS LEGS SYNDROME
     Dosage: 2 MG
     Route: 048
  7. FLUOXETINE HCL [Concomitant]
     Indication: DEPRESSION
     Dosage: 20 MG
     Route: 048
  8. METOPROLOL TARTRATE [Concomitant]
     Indication: HYPERTENSION
     Dosage: 25 MG
     Route: 048
  9. LEVOTHYROXINE SODIUM [Concomitant]
     Indication: HYPOTHYROIDISM
     Dosage: 50 MG
     Route: 048

REACTIONS (3)
  - FATIGUE [None]
  - THROAT IRRITATION [None]
  - ODYNOPHAGIA [None]
